FAERS Safety Report 7568937-2 (Version None)
Quarter: 2011Q2

REPORT INFORMATION
  Report Type: 
  Country: None (occurrence: None)
  Receive Date: 20110623
  Receipt Date: 20110620
  Transmission Date: 20111010
  Serious: Yes (Hospitalization)
  Sender: FDA-Public Use
  Company Number: US-TEVA-287160USA

PATIENT
  Age: 17 Year
  Sex: Female

DRUGS (5)
  1. ETOPOSIDE [Suspect]
     Indication: CHORIOCARCINOMA
  2. DACTINOMYCIN [Suspect]
     Indication: CHORIOCARCINOMA
  3. VINCRISTINE [Suspect]
     Indication: CHORIOCARCINOMA
  4. CYCLOPHOSPHAMIDE [Suspect]
  5. METHOTREXATE [Suspect]
     Indication: CHORIOCARCINOMA

REACTIONS (3)
  - CARDIAC FAILURE CONGESTIVE [None]
  - TUMOUR LYSIS SYNDROME [None]
  - HYPERTHYROIDISM [None]
